FAERS Safety Report 24184348 (Version 1)
Quarter: 2024Q3

REPORT INFORMATION
  Report Type: Spontaneous
  Country: GB (occurrence: GB)
  Receive Date: 20240807
  Receipt Date: 20240807
  Transmission Date: 20241017
  Serious: Yes (Hospitalization, Other)
  Sender: MYLAN
  Company Number: GB-002147023-PHFR2014GB004214

PATIENT
  Age: 58 Year
  Sex: Female

DRUGS (9)
  1. VALSARTAN [Suspect]
     Active Substance: VALSARTAN
     Indication: Product used for unknown indication
     Dosage: 80 MILLIGRAM
     Route: 065
     Dates: start: 20120403, end: 20120430
  2. VALSARTAN [Suspect]
     Active Substance: VALSARTAN
     Dosage: UNK
     Route: 065
  3. VALSARTAN [Suspect]
     Active Substance: VALSARTAN
     Indication: Product used for unknown indication
     Dosage: 320 MILLIGRAM
     Route: 065
  4. VALSARTAN [Suspect]
     Active Substance: VALSARTAN
     Dosage: UNK
     Route: 065
  5. RAMIPRIL [Suspect]
     Active Substance: RAMIPRIL
     Indication: Hypertension
     Dosage: 2.5 MG, UNK
     Route: 048
  6. RAMIPRIL [Suspect]
     Active Substance: RAMIPRIL
     Indication: Product used for unknown indication
     Dosage: 10 MG, UNK
     Route: 065
  7. VALSARTAN [Suspect]
     Active Substance: VALSARTAN
     Indication: Hypertension
     Dosage: 320 MG, UNK
     Route: 065
     Dates: end: 20140207
  8. IRBESARTAN [Suspect]
     Active Substance: IRBESARTAN
     Indication: Hypertension
     Dosage: UNK
     Route: 065
  9. BISOPROLOL [Concomitant]
     Active Substance: BISOPROLOL\BISOPROLOL FUMARATE
     Dosage: 2.5 MG UNK
     Route: 065

REACTIONS (21)
  - Malaise [Unknown]
  - Hepatic enzyme increased [Unknown]
  - Abdominal discomfort [Unknown]
  - White blood cell count increased [Unknown]
  - Swollen tongue [Unknown]
  - Restlessness [Unknown]
  - Fear [Unknown]
  - Tinnitus [Unknown]
  - Weight increased [Unknown]
  - Oedema mouth [Unknown]
  - Feeling abnormal [Unknown]
  - Alopecia [Unknown]
  - Muscle strain [Unknown]
  - Chest pain [Unknown]
  - Drug ineffective [Unknown]
  - Tenderness [Unknown]
  - Cell marker increased [Unknown]
  - Troponin increased [Unknown]
  - Gastrointestinal oedema [Unknown]
  - Nasal dryness [Unknown]
  - Ear discomfort [Unknown]
